FAERS Safety Report 20859986 (Version 1)
Quarter: 2022Q2

REPORT INFORMATION
  Report Type: Spontaneous
  Country: US (occurrence: US)
  Receive Date: 20220523
  Receipt Date: 20220523
  Transmission Date: 20220721
  Serious: Yes (Death, Other)
  Sender: FDA-Public Use
  Company Number: US-TAKEDA-2022TUS032500

PATIENT
  Age: 54 Year
  Sex: Female

DRUGS (2)
  1. MARIBAVIR [Suspect]
     Active Substance: MARIBAVIR
     Indication: Product used for unknown indication
     Dosage: 200 MILLIGRAM, BID
     Route: 048
  2. FOSCARNET [Concomitant]
     Active Substance: FOSCARNET

REACTIONS (3)
  - Acute respiratory distress syndrome [Fatal]
  - Pneumonia cytomegaloviral [Unknown]
  - Cytomegalovirus colitis [Unknown]
